FAERS Safety Report 24682668 (Version 2)
Quarter: 2024Q4

REPORT INFORMATION
  Report Type: Spontaneous
  Country: IT (occurrence: IT)
  Receive Date: 20241130
  Receipt Date: 20241217
  Transmission Date: 20250115
  Serious: Yes (Hospitalization, Other)
  Sender: ALEXION PHARMACEUTICALS
  Company Number: None

PATIENT
  Age: 66 Year
  Weight: 70 kg

DRUGS (8)
  1. IMFINZI [Suspect]
     Active Substance: DURVALUMAB
     Indication: Hepatocellular carcinoma
     Dosage: 1500 MG OGNI 28 GIORNI
  2. IMFINZI [Suspect]
     Active Substance: DURVALUMAB
     Dosage: 1500 MG OGNI 28 GIORNI
     Route: 042
  3. IMFINZI [Suspect]
     Active Substance: DURVALUMAB
     Dosage: 1500 MG OGNI 28 GIORNI
  4. IMFINZI [Suspect]
     Active Substance: DURVALUMAB
     Dosage: 1500 MG OGNI 28 GIORNI
     Route: 042
  5. IMJUDO [Suspect]
     Active Substance: TREMELIMUMAB\TREMELIMUMAB-ACTL
     Indication: Hepatocellular carcinoma
     Dosage: 300 MG G. 1 DEL TRATTAMENTO
  6. IMJUDO [Suspect]
     Active Substance: TREMELIMUMAB\TREMELIMUMAB-ACTL
     Dosage: 300 MG G. 1 DEL TRATTAMENTO
     Route: 042
  7. IMJUDO [Suspect]
     Active Substance: TREMELIMUMAB\TREMELIMUMAB-ACTL
     Dosage: 300 MG G. 1 DEL TRATTAMENTO
  8. IMJUDO [Suspect]
     Active Substance: TREMELIMUMAB\TREMELIMUMAB-ACTL
     Dosage: 300 MG G. 1 DEL TRATTAMENTO
     Route: 042

REACTIONS (4)
  - Pyrexia [Recovered/Resolved]
  - Immune-mediated neuropathy [Not Recovered/Not Resolved]
  - Cryoglobulinaemia [Not Recovered/Not Resolved]
  - Diarrhoea [Recovering/Resolving]
